FAERS Safety Report 7124147-4 (Version None)
Quarter: 2010Q4

REPORT INFORMATION
  Report Type: 
  Country: None (occurrence: None)
  Receive Date: 20101126
  Receipt Date: 20101112
  Transmission Date: 20110411
  Serious: Yes (Hospitalization, Other)
  Sender: FDA-Public Use
  Company Number: PHHY2010BR76929

PATIENT
  Sex: Female

DRUGS (4)
  1. DIOVAN [Suspect]
  2. BALCOR [Concomitant]
     Dosage: ONE TABLET DAILY, UNK
     Route: 048
  3. SUSTRATE [Concomitant]
     Dosage: 10 MG, ONE TABLET,  DAILY
     Route: 048
  4. VASOGARD [Concomitant]
     Dosage: 50 MG, ONE TABLET

REACTIONS (6)
  - FALL [None]
  - GAIT DISTURBANCE [None]
  - KNEE ARTHROPLASTY [None]
  - LIMB PROSTHESIS USER [None]
  - MEMORY IMPAIRMENT [None]
  - SURGERY [None]
